FAERS Safety Report 14904322 (Version 2)
Quarter: 2018Q2

REPORT INFORMATION
  Report Type: Report from Study
  Country: US (occurrence: US)
  Receive Date: 20180517
  Receipt Date: 20180625
  Transmission Date: 20180711
  Serious: No
  Sender: FDA-Public Use
  Company Number: US-ALLERGAN-1824947US

PATIENT
  Age: 30 Year
  Sex: Male

DRUGS (2)
  1. ASENAPINE MALEATE 2.5MG TAB (TBD) [Suspect]
     Active Substance: ASENAPINE MALEATE
     Indication: DEPRESSION
     Dosage: UNK, UNKNOWN
     Route: 048
     Dates: start: 201803
  2. ASENAPINE MALEATE 2.5MG TAB (TBD) [Suspect]
     Active Substance: ASENAPINE MALEATE
     Indication: BIPOLAR DISORDER

REACTIONS (3)
  - Incorrect route of drug administration [Unknown]
  - Off label use [Unknown]
  - Rash [Not Recovered/Not Resolved]

NARRATIVE: CASE EVENT DATE: 201803
